FAERS Safety Report 9282831 (Version 1)
Quarter: 2013Q2

REPORT INFORMATION
  Report Type: Report from Study
  Country: US (occurrence: US)
  Receive Date: 20130510
  Receipt Date: 20130510
  Transmission Date: 20140414
  Serious: No
  Sender: FDA-Public Use
  Company Number: PHEH2013US010199

PATIENT
  Sex: Female

DRUGS (11)
  1. TASIGNA [Suspect]
     Indication: CHRONIC MYELOID LEUKAEMIA
     Dosage: 400 MG, BID
     Route: 048
     Dates: start: 201304
  2. LYRICA [Concomitant]
     Dosage: 100 MG, UNK
  3. LAMOTRIGINE [Concomitant]
     Dosage: 100 MG, UNK
  4. PRAVASTATIN SODIUM [Concomitant]
     Dosage: 10 MG, UNK
  5. LORAZEPAM [Concomitant]
     Dosage: 0.5 MG, UNK
  6. FLONASE [Concomitant]
     Dosage: 0.05 %, UNK
  7. ALLOPURINOL [Concomitant]
     Dosage: 100 MG, UNK
  8. LEVOTHYROXINE [Concomitant]
     Dosage: 100 UG, UNK
  9. ESTROPIPATE [Concomitant]
     Dosage: 1.5 MG, UNK
  10. AMANTADINE [Concomitant]
     Dosage: 100 MG, UNK
  11. TYLENOL EXTRA STRENGTH [Concomitant]
     Dosage: 500 MG, UNK

REACTIONS (4)
  - Bleeding time prolonged [Unknown]
  - Stomatitis [Unknown]
  - Fatigue [Unknown]
  - Rash [Unknown]
